FAERS Safety Report 24975050 (Version 1)
Quarter: 2025Q1

REPORT INFORMATION
  Report Type: Spontaneous
  Country: US (occurrence: US)
  Receive Date: 20250217
  Receipt Date: 20250217
  Transmission Date: 20250408
  Serious: Yes (Death)
  Sender: ROCHE
  Company Number: US-ROCHE-10000203803

PATIENT
  Age: 65 Year
  Sex: Female

DRUGS (9)
  1. OCREVUS [Suspect]
     Active Substance: OCRELIZUMAB
     Indication: Multiple sclerosis
     Route: 040
     Dates: start: 20240812, end: 20250117
  2. AMPYRA 10 MG TABLETS [Concomitant]
  3. BACLOFEN [Concomitant]
     Active Substance: BACLOFEN
  4. CLOPIDOGREL BISULFATE [Concomitant]
     Active Substance: CLOPIDOGREL BISULFATE
  5. LOVASTATIN 10 MG TABLETS [Concomitant]
  6. TYLENOL 325 MG TABLETS [Concomitant]
  7. VITAMIN B12 2000 MCG TABLETS 60^S [Concomitant]
  8. VITAMIN D3 1000 UNIT TABLET [Concomitant]
  9. VITAMIN E 1000 IU CAPSULES [Concomitant]

REACTIONS (1)
  - Death [Fatal]

NARRATIVE: CASE EVENT DATE: 20250117
